FAERS Safety Report 15111534 (Version 3)
Quarter: 2019Q1

REPORT INFORMATION
  Report Type: Spontaneous
  Country: US (occurrence: US)
  Receive Date: 20180705
  Receipt Date: 20190107
  Transmission Date: 20190417
  Serious: Yes (Hospitalization)
  Sender: FDA-Public Use
  Company Number: US-OTSUKA-2018_017063

PATIENT
  Sex: Female

DRUGS (3)
  1. ABILIFY [Suspect]
     Active Substance: ARIPIPRAZOLE
     Indication: MAJOR DEPRESSION
  2. ABILIFY [Suspect]
     Active Substance: ARIPIPRAZOLE
     Indication: BIPOLAR DISORDER
     Dosage: 10 MG, QD
     Route: 065
     Dates: end: 200709
  3. ABILIFY [Suspect]
     Active Substance: ARIPIPRAZOLE
     Indication: EATING DISORDER

REACTIONS (9)
  - Product use in unapproved indication [Unknown]
  - Compulsive shopping [Recovered/Resolved]
  - Bankruptcy [Unknown]
  - Obsessive-compulsive disorder [Recovered/Resolved]
  - Mental disorder [Unknown]
  - Hypersexuality [Unknown]
  - Impulsive behaviour [Recovered/Resolved]
  - Economic problem [Unknown]
  - Eating disorder [Recovered/Resolved]

NARRATIVE: CASE EVENT DATE: 2005
